FAERS Safety Report 6003670-X (Version None)
Quarter: 2008Q4

REPORT INFORMATION
  Report Type: 
  Country: None (occurrence: None)
  Receive Date: 20081216
  Receipt Date: 20080728
  Transmission Date: 20090506
  Serious: No
  Sender: FDA-Public Use
  Company Number: US-AMGEN-KDL297785

PATIENT
  Sex: Female

DRUGS (2)
  1. ARANESP [Suspect]
     Indication: ANAEMIA OF MALIGNANT DISEASE
     Dates: start: 20080711
  2. INTERFERON [Concomitant]

REACTIONS (3)
  - MEMORY IMPAIRMENT [None]
  - MUSCLE FATIGUE [None]
  - RED BLOOD CELL COUNT DECREASED [None]
